FAERS Safety Report 22117501 (Version 4)
Quarter: 2023Q2

REPORT INFORMATION
  Report Type: Report from Study
  Country: US (occurrence: US)
  Receive Date: 20230321
  Receipt Date: 20230522
  Transmission Date: 20230721
  Serious: Yes (Other)
  Sender: FDA-Public Use
  Company Number: US-BEH-2023156657

PATIENT
  Age: 71 Year
  Sex: Female

DRUGS (5)
  1. HIZENTRA [Suspect]
     Active Substance: HUMAN IMMUNOGLOBULIN G
     Indication: Immunodeficiency common variable
     Dosage: 12 GRAM, QOW
     Route: 058
     Dates: start: 201906
  2. HIZENTRA [Suspect]
     Active Substance: HUMAN IMMUNOGLOBULIN G
     Dosage: 8 GRAM
     Route: 058
     Dates: start: 20230301
  3. HIZENTRA [Suspect]
     Active Substance: HUMAN IMMUNOGLOBULIN G
     Dosage: 12 GRAM AS ORDERED
     Route: 065
  4. HIZENTRA [Suspect]
     Active Substance: HUMAN IMMUNOGLOBULIN G
     Dosage: UNK
     Route: 058
  5. HIZENTRA [Suspect]
     Active Substance: HUMAN IMMUNOGLOBULIN G
     Dosage: UNK (WITH ADDITIONAL 4 GRAMS)
     Route: 065
     Dates: start: 2023

REACTIONS (10)
  - No adverse event [Not Recovered/Not Resolved]
  - Incorrect dose administered [Not Recovered/Not Resolved]
  - Device issue [Recovered/Resolved]
  - Syringe issue [Recovered/Resolved]
  - Aphasia [Unknown]
  - Dysphagia [Unknown]
  - Decreased appetite [Unknown]
  - Speech disorder [Unknown]
  - Weight fluctuation [Unknown]
  - Weight decreased [Unknown]

NARRATIVE: CASE EVENT DATE: 20230301
